FAERS Safety Report 12217475 (Version 6)
Quarter: 2016Q2

REPORT INFORMATION
  Report Type: Report from Study
  Country: US (occurrence: US)
  Receive Date: 20160329
  Receipt Date: 20160622
  Transmission Date: 20160815
  Serious: Yes (Death, Hospitalization, Other)
  Sender: FDA-Public Use
  Company Number: US-BAYER-2016-052202

PATIENT
  Age: 61 Year
  Sex: Male
  Weight: 81.36 kg

DRUGS (4)
  1. ADEMPAS [Suspect]
     Active Substance: RIOCIGUAT
     Indication: PULMONARY HYPERTENSION
     Dosage: 2.0 MG, TID
     Route: 048
  2. ADEMPAS [Suspect]
     Active Substance: RIOCIGUAT
     Indication: PULMONARY HYPERTENSION
     Dosage: UNK
     Route: 048
     Dates: start: 20151204
  3. ADEMPAS [Suspect]
     Active Substance: RIOCIGUAT
     Indication: PULMONARY HYPERTENSION
     Dosage: 1.5 MG, TID
     Route: 048
  4. ADEMPAS [Suspect]
     Active Substance: RIOCIGUAT
     Indication: PULMONARY HYPERTENSION
     Dosage: 2.0 MG, TID
     Route: 048

REACTIONS (11)
  - Urinary tract infection [Unknown]
  - Hypertension [None]
  - Drug ineffective [None]
  - Vessel puncture site haemorrhage [Unknown]
  - Fluid overload [None]
  - Blood magnesium decreased [None]
  - Pulmonary hypertension [None]
  - Pyrexia [None]
  - Death [Fatal]
  - Right ventricular failure [None]
  - Fluid overload [Unknown]

NARRATIVE: CASE EVENT DATE: 20160318
